FAERS Safety Report 7972079-1 (Version None)
Quarter: 2011Q4

REPORT INFORMATION
  Report Type: 
  Country: None (occurrence: None)
  Receive Date: 20111212
  Receipt Date: 20111208
  Transmission Date: 20120403
  Serious: No
  Sender: FDA-Public Use
  Company Number: US-PFIZER INC-2011299760

PATIENT
  Sex: Male
  Weight: 114 kg

DRUGS (7)
  1. LIPITOR [Suspect]
     Indication: BLOOD CHOLESTEROL INCREASED
     Dosage: 20 MG, DAILY
     Route: 048
  2. ACETYLSALICYLIC ACID [Concomitant]
     Dosage: 81 MG, DAILY
  3. ASCORBIC ACID [Suspect]
     Indication: NASOPHARYNGITIS
  4. ADVAIR DISKUS 100/50 [Concomitant]
     Indication: ASTHMA
     Dosage: [FLUTICASONE 500 MCG/ SALMETEROL 50 MCG], 2X/DAY
  5. ASCORBIC ACID [Suspect]
     Indication: IMMUNE SYSTEM DISORDER
     Dosage: 500 MG, DAILY
     Dates: start: 20111201
  6. SYNTHROID [Concomitant]
     Indication: HYPOTHYROIDISM
     Dosage: 0.15 MG, DAILY
  7. FLUTICASONE PROPIONATE [Concomitant]
     Indication: NASAL DISCOMFORT
     Dosage: 50 UG, UNK

REACTIONS (2)
  - MUSCLE SPASMS [None]
  - NASOPHARYNGITIS [None]
